FAERS Safety Report 17898520 (Version 1)
Quarter: 2020Q2

REPORT INFORMATION
  Report Type: Spontaneous
  Country: US (occurrence: US)
  Receive Date: 20200616
  Receipt Date: 20200616
  Transmission Date: 20200714
  Serious: Yes (Hospitalization, Other)
  Sender: FDA-Public Use
  Company Number: US-DRREDDYS-USA/USA/20/0124092

PATIENT
  Age: 58 Year
  Sex: Female

DRUGS (4)
  1. ZOLEDRONIC ACID INJECTION 4MG/100ML [Suspect]
     Active Substance: ZOLEDRONIC ACID
     Indication: METASTASES TO BONE
     Route: 042
  2. CALCIUM [Concomitant]
     Active Substance: CALCIUM
     Indication: PRODUCT USED FOR UNKNOWN INDICATION
     Route: 065
  3. VITAMIN D [Concomitant]
     Active Substance: VITAMIN D NOS
     Indication: PRODUCT USED FOR UNKNOWN INDICATION
     Route: 065
  4. ZOLEDRONIC ACID INJECTION 4MG/100ML [Suspect]
     Active Substance: ZOLEDRONIC ACID
     Route: 042

REACTIONS (1)
  - Atypical femur fracture [Unknown]
